FAERS Safety Report 24000508 (Version 1)
Quarter: 2024Q2

REPORT INFORMATION
  Report Type: Spontaneous
  Country: CH (occurrence: CH)
  Receive Date: 20240621
  Receipt Date: 20240621
  Transmission Date: 20240716
  Serious: Yes (Other)
  Sender: FDA-Public Use
  Company Number: CH-PHARMAMAR-2024PM000112

PATIENT
  Age: 58 Year
  Sex: Male

DRUGS (2)
  1. ZEPZELCA [Suspect]
     Active Substance: LURBINECTEDIN
     Indication: Prostate cancer
     Dosage: 3.2 MILLIGRAM/KILOGRAM, Q3W
     Route: 042
     Dates: start: 20231219, end: 20240220
  2. ZEPZELCA [Suspect]
     Active Substance: LURBINECTEDIN
     Dosage: 5 MILLIGRAM, CYCLES 5 AND 6

REACTIONS (2)
  - Thrombocytopenia [Recovered/Resolved]
  - Off label use [Unknown]
